FAERS Safety Report 5050594-0 (Version None)
Quarter: 2006Q3

REPORT INFORMATION
  Report Type: 
  Country: None (occurrence: None)
  Receive Date: 20060713
  Receipt Date: 20060710
  Transmission Date: 20061208
  Serious: Yes (Hospitalization, Congenital Anomaly)
  Sender: FDA-Public Use
  Company Number: NL-GLAXOSMITHKLINE-B0430707A

PATIENT
  Age: 0 Year
  Sex: Female
  Weight: 3 kg

DRUGS (2)
  1. PAROXETINE HCL [Suspect]
     Dosage: 20MG PER DAY
  2. DEPAKENE [Concomitant]
     Dosage: 500MG PER DAY

REACTIONS (2)
  - DRUG EXPOSURE DURING PREGNANCY [None]
  - PULMONARY HYPERTENSION [None]
